FAERS Safety Report 7000537-5 (Version None)
Quarter: 2010Q3

REPORT INFORMATION
  Report Type: 
  Country: None (occurrence: None)
  Receive Date: 20100920
  Receipt Date: 20070709
  Transmission Date: 20110219
  Serious: Yes (Other)
  Sender: FDA-Public Use
  Company Number: US-ASTRAZENECA-2006UW12318

PATIENT
  Age: 47 Year
  Sex: Female
  Weight: 56.7 kg

DRUGS (7)
  1. SEROQUEL [Suspect]
     Indication: DEPRESSION
     Dosage: 100MG, DISPENSED
     Route: 048
     Dates: start: 20050101
  2. ZYPREXA [Suspect]
  3. DEPAKOTE [Concomitant]
     Dates: start: 20010801
  4. PROZAC [Concomitant]
     Dates: start: 20050101
  5. NEURONTIN [Concomitant]
     Dates: start: 20050101
  6. DILANTIN [Concomitant]
     Indication: CONVULSION
     Dates: start: 20000526
  7. ACIPHEX [Concomitant]
     Indication: ULCER
     Dates: start: 20010801

REACTIONS (2)
  - DIABETES MELLITUS [None]
  - PANCREATITIS [None]
